FAERS Safety Report 24814845 (Version 1)
Quarter: 2025Q1

REPORT INFORMATION
  Report Type: Spontaneous
  Country: CN (occurrence: CN)
  Receive Date: 20250107
  Receipt Date: 20250107
  Transmission Date: 20250408
  Serious: Yes (Life-Threatening, Hospitalization)
  Sender: BAYER HEALTHCARE PHARMACEUTICALS INC.
  Company Number: CN-BAYER-2025A002094

PATIENT
  Age: 79 Year
  Sex: Male
  Weight: 55 kg

DRUGS (1)
  1. ULTRAVIST [Suspect]
     Active Substance: IOPROMIDE
     Indication: Angiogram
     Route: 050
     Dates: start: 20241108, end: 20241108

REACTIONS (7)
  - Nephropathy toxic [Recovering/Resolving]
  - Cardiac failure [Recovering/Resolving]
  - Chest discomfort [None]
  - Tachypnoea [None]
  - Blood pressure systolic increased [None]
  - Nutritional condition abnormal [Not Recovered/Not Resolved]
  - Asthenia [Not Recovered/Not Resolved]

NARRATIVE: CASE EVENT DATE: 20241101
